FAERS Safety Report 8486334-2 (Version None)
Quarter: 2012Q3

REPORT INFORMATION
  Report Type: 
  Country: None (occurrence: None)
  Receive Date: 20120703
  Receipt Date: 20120517
  Transmission Date: 20120928
  Serious: Yes (Other)
  Sender: FDA-Public Use
  Company Number: US-GLAXOSMITHKLINE-A0978607A

PATIENT
  Age: 69 Year
  Sex: Male
  Weight: 80 kg

DRUGS (6)
  1. HYDRODIURIL [Concomitant]
  2. FINASTERIDE [Concomitant]
  3. ZYLOPRIM [Concomitant]
  4. XANAX [Concomitant]
  5. ALTACE [Concomitant]
  6. ARRANON [Suspect]
     Indication: PRODUCT USED FOR UNKNOWN INDICATION
     Dosage: 1500MGM2 UNKNOWN
     Route: 042
     Dates: start: 20111207, end: 20120113

REACTIONS (2)
  - NEUROPATHY PERIPHERAL [None]
  - DISEASE PROGRESSION [None]
